FAERS Safety Report 20137285 (Version 1)
Quarter: 2021Q4

REPORT INFORMATION
  Report Type: Spontaneous
  Country: PL (occurrence: PL)
  Receive Date: 20211201
  Receipt Date: 20211201
  Transmission Date: 20220303
  Serious: Yes (Other)
  Sender: FDA-Public Use
  Company Number: PL-ASTELLAS-2021US042843

PATIENT
  Age: 79 Year
  Sex: Male

DRUGS (3)
  1. TAMSULOSIN [Suspect]
     Active Substance: TAMSULOSIN
     Indication: Product used for unknown indication
     Dosage: UNK UNK, UNKNOWN FREQ,THERAPY START DATE :THERAPY END DATE :ASKU
     Route: 065
  2. VESICARE [Suspect]
     Active Substance: SOLIFENACIN SUCCINATE
     Indication: Hypertonic bladder
     Dosage: 10 MG, UNKNOWN FREQ.THERAPY START DATE:THERAPY END DATE:ASKU,ADDITIONAL INFORMATION:2ND INDICATION:
     Route: 065
  3. VESICARE [Suspect]
     Active Substance: SOLIFENACIN SUCCINATE
     Indication: Urinary incontinence

REACTIONS (3)
  - Urinary retention [Unknown]
  - Urinary incontinence [Unknown]
  - Hypertonic bladder [Unknown]
